FAERS Safety Report 4871674-6 (Version None)
Quarter: 2006Q1

REPORT INFORMATION
  Report Type: 
  Country: None (occurrence: None)
  Receive Date: 20060104
  Receipt Date: 20051208
  Transmission Date: 20060701
  Serious: Yes (Disabling)
  Sender: FDA-Public Use
  Company Number: TW-BRISTOL-MYERS SQUIBB COMPANY-13223342

PATIENT
  Age: 45 Year
  Sex: Female

DRUGS (2)
  1. TAXOL [Suspect]
     Indication: BREAST CANCER METASTATIC
     Route: 042
     Dates: start: 20051031, end: 20051201
  2. GEMZAR [Concomitant]
     Indication: BREAST CANCER METASTATIC
     Dates: start: 20051031

REACTIONS (2)
  - DIPLOPIA [None]
  - OSCILLOPSIA [None]
